FAERS Safety Report 16975360 (Version 1)
Quarter: 2019Q4

REPORT INFORMATION
  Report Type: Spontaneous
  Country: CN (occurrence: CN)
  Receive Date: 20191030
  Receipt Date: 20191030
  Transmission Date: 20200122
  Serious: Yes (Hospitalization)
  Sender: FDA-Public Use
  Company Number: CN-BAXTER-2019BAX021589

PATIENT
  Sex: Female
  Weight: 43 kg

DRUGS (7)
  1. PEGYLATED RECOMBINANT HUMAN GRANULOCYTE COLONY-STIMULATING FACTOR [Concomitant]
     Indication: PROPHYLAXIS
     Route: 058
     Dates: start: 20191002, end: 20191002
  2. AISU [Suspect]
     Active Substance: DOCETAXEL
     Indication: BREAST CANCER FEMALE
     Dosage: AISU 20 MG + 0.9% SODIUM CHLORIDE 100 ML
     Route: 041
     Dates: start: 20190930, end: 20190930
  3. ENDOXAN [Suspect]
     Active Substance: CYCLOPHOSPHAMIDE
     Indication: BREAST CANCER FEMALE
     Dosage: ENDOXAN 800 MG + 0.9% SODIUM CHLORIDE 100 ML
     Route: 041
     Dates: start: 20190930, end: 20190930
  4. 0.9% SODIUM CHLORIDE INJECTION [Suspect]
     Active Substance: SODIUM CHLORIDE
     Dosage: 0.9% SODIUM CHLORIDE 250 ML + AISU 80 MG
     Route: 041
     Dates: start: 20190930, end: 20190930
  5. 0.9% SODIUM CHLORIDE INJECTION [Suspect]
     Active Substance: SODIUM CHLORIDE
     Dosage: 0.9% SODIUM CHLORIDE 100 ML + AISU 20 MG
     Route: 041
     Dates: start: 20190930, end: 20190930
  6. AISU [Suspect]
     Active Substance: DOCETAXEL
     Dosage: AISU 80 MG + 0.9% SODIUM CHLORIDE 250 ML
     Route: 041
     Dates: start: 20190930, end: 20190930
  7. 0.9% SODIUM CHLORIDE INJECTION [Suspect]
     Active Substance: SODIUM CHLORIDE
     Indication: MEDICATION DILUTION
     Dosage: 0.9% SODIUM CHLORIDE 100 ML + ENDOXAN 800 MG
     Route: 041
     Dates: start: 20190930, end: 20190930

REACTIONS (1)
  - Bone marrow failure [Recovering/Resolving]

NARRATIVE: CASE EVENT DATE: 20191006
